FAERS Safety Report 8444618-8 (Version None)
Quarter: 2012Q2

REPORT INFORMATION
  Report Type: 
  Country: None (occurrence: None)
  Receive Date: 20120618
  Receipt Date: 20120611
  Transmission Date: 20120825
  Serious: Yes (Death)
  Sender: FDA-Public Use
  Company Number: US-PFIZER INC-2012141731

PATIENT
  Sex: Male

DRUGS (1)
  1. VFEND [Suspect]
     Indication: ACUTE MYELOID LEUKAEMIA
     Dosage: 200 MG, 2X/DAY
     Dates: start: 20120223

REACTIONS (3)
  - DISEASE PROGRESSION [None]
  - ACUTE MYELOID LEUKAEMIA [None]
  - COMPLICATIONS OF TRANSPLANT SURGERY [None]
